FAERS Safety Report 8844591 (Version 1)
Quarter: 2012Q4

REPORT INFORMATION
  Report Type: Spontaneous
  Country: JP (occurrence: None)
  Receive Date: 20121012
  Receipt Date: 20121012
  Transmission Date: 20130627
  Serious: Yes (Other)
  Sender: FDA-Public Use
  Company Number: AE-SPE-2012-016

PATIENT
  Age: 64 Year
  Sex: Female

DRUGS (8)
  1. MEIACT MS [Suspect]
     Indication: ACUTE PHARYNGITIS
     Dates: start: 20120416, end: 20120419
  2. TRANEXAMIC ACID [Concomitant]
  3. CLARITHROMYCIN [Concomitant]
  4. LACTOMIN/AMYLOLYTIC BACILLUS [Concomitant]
  5. SOFALCONE [Concomitant]
  6. BETAMETHASONE [Concomitant]
  7. ACETAMINOPHEN [Concomitant]
  8. SODIUM GUALENATE HYDRATE [Concomitant]

REACTIONS (1)
  - Lacunar infarction [None]
